FAERS Safety Report 11778375 (Version 1)
Quarter: 2015Q4

REPORT INFORMATION
  Report Type: Spontaneous
  Country: US (occurrence: US)
  Receive Date: 20151125
  Receipt Date: 20151125
  Transmission Date: 20160304
  Serious: No
  Sender: FDA-Public Use
  Company Number: US-BAYER-2015-475954

PATIENT
  Age: 78 Year
  Sex: Female
  Weight: 90.7 kg

DRUGS (2)
  1. TARCEVA [Concomitant]
     Active Substance: ERLOTINIB HYDROCHLORIDE
  2. OXYTROL FOR WOMEN [Suspect]
     Active Substance: OXYBUTYNIN
     Indication: HYPERTONIC BLADDER
     Dosage: 1 PATCH IN EVERY 4 DAYS
     Route: 061
     Dates: start: 2014, end: 20151124

REACTIONS (2)
  - Expired product administered [None]
  - Physical product label issue [None]
